FAERS Safety Report 9283188 (Version 1)
Quarter: 2013Q2

REPORT INFORMATION
  Report Type: Spontaneous
  Country: US (occurrence: US)
  Receive Date: 20130510
  Receipt Date: 20130510
  Transmission Date: 20140414
  Serious: No
  Sender: FDA-Public Use
  Company Number: US-GLAXOSMITHKLINE-A0987215A

PATIENT
  Age: 54 Year
  Sex: Female

DRUGS (8)
  1. TYKERB [Suspect]
     Indication: BREAST CANCER
     Dosage: 1250MG UNKNOWN
     Route: 048
     Dates: start: 20120617
  2. COMPAZINE [Concomitant]
  3. LOVENOX [Concomitant]
  4. LEXAPRO [Concomitant]
  5. XELODA [Concomitant]
  6. VITAMIN D [Concomitant]
  7. PROTONIX [Concomitant]
  8. BIOTENE [Concomitant]

REACTIONS (9)
  - Decreased appetite [Not Recovered/Not Resolved]
  - Dry mouth [Unknown]
  - Erythema [Unknown]
  - Erythema [Unknown]
  - Rash [Unknown]
  - Dysgeusia [Unknown]
  - Nausea [Unknown]
  - Constipation [Unknown]
  - Pain in extremity [Unknown]
